FAERS Safety Report 5918231-8 (Version None)
Quarter: 2008Q3

REPORT INFORMATION
  Report Type: 
  Country: None (occurrence: None)
  Receive Date: 20080909
  Receipt Date: 20051012
  Transmission Date: 20090109
  Serious: Yes (Death)
  Sender: FDA-Public Use
  Company Number: 163-20785-05090198

PATIENT
  Age: 55 Year
  Sex: Female

DRUGS (13)
  1. THALOMID [Suspect]
     Indication: MYELODYSPLASTIC SYNDROME
     Dosage: 50 MG, AT BEDTIME, ORAL
     Route: 048
     Dates: start: 20050825, end: 20050101
  2. NITROGLYCERIN PATCH (GLYCERYL TRINITRATE) (POLLUTICE OR PATCH) [Concomitant]
  3. CATAPRES [Concomitant]
  4. REGLAN [Concomitant]
  5. PEPCID [Concomitant]
  6. NORVASC [Concomitant]
  7. INSULIN (INSULIN) [Concomitant]
  8. SURFAK (DOCUSATE CALCIUM) [Concomitant]
  9. PROTONIX [Concomitant]
  10. DANAZOL [Concomitant]
  11. LORTAB [Concomitant]
  12. MORPHINE [Concomitant]
  13. ARANESP [Concomitant]

REACTIONS (1)
  - DEATH [None]
